FAERS Safety Report 9034425 (Version 1)
Quarter: 2013Q1

REPORT INFORMATION
  Report Type: Spontaneous
  Country: JP (occurrence: None)
  Receive Date: 20130111
  Receipt Date: 20130111
  Transmission Date: 20140127
  Serious: Yes (Other)
  Sender: FDA-Public Use
  Company Number: ENT 2013-0002

PATIENT
  Sex: Female

DRUGS (1)
  1. COMTAN [Suspect]
     Indication: PARKINSON^S DISEASE
     Route: 048

REACTIONS (8)
  - Chromaturia [None]
  - Joint stiffness [None]
  - Gamma-glutamyltransferase increased [None]
  - Red blood cell count increased [None]
  - Somnolence [None]
  - Road traffic accident [None]
  - Musculoskeletal stiffness [None]
  - Dyskinesia [None]
